FAERS Safety Report 4618383-6 (Version None)
Quarter: 2005Q1

REPORT INFORMATION
  Report Type: 
  Country: None (occurrence: None)
  Receive Date: 20050323
  Receipt Date: 20050310
  Transmission Date: 20050727
  Serious: Yes (Hospitalization)
  Sender: FDA-Public Use
  Company Number: 2005043357

PATIENT
  Age: 44 Year
  Sex: Male
  Weight: 125 kg

DRUGS (1)
  1. SOMATROPIN (SOMATROPIN) [Suspect]
     Indication: HYPOPITUITARISM
     Dosage: 0.4 MG (0.4 MG)
     Dates: start: 19980620

REACTIONS (1)
  - BIRTH MARK [None]
